FAERS Safety Report 15230890 (Version 5)
Quarter: 2022Q1

REPORT INFORMATION
  Report Type: Spontaneous
  Country: PL (occurrence: PL)
  Receive Date: 20180802
  Receipt Date: 20220317
  Transmission Date: 20220423
  Serious: Yes (Other)
  Sender: FDA-Public Use
  Company Number: PL-AUROBINDO-AUR-APL-2018-033340

PATIENT
  Age: 34 Year
  Sex: Female

DRUGS (3)
  1. ESCITALOPRAM [Suspect]
     Active Substance: ESCITALOPRAM OXALATE
     Indication: Depression
     Dosage: 10 MILLIGRAM, ONCE A DAY
     Route: 065
  2. BRINTELLIX [Suspect]
     Active Substance: VORTIOXETINE HYDROBROMIDE
     Indication: Depression
     Dosage: 10 MILLIGRAM, ONCE A DAY
     Route: 065
  3. TIANEPTINE [Concomitant]
     Active Substance: TIANEPTINE
     Indication: Depression
     Dosage: 10 MILLIGRAM, DAILY
     Route: 065

REACTIONS (7)
  - Cognitive disorder [Recovered/Resolved]
  - Dizziness [Recovering/Resolving]
  - Mental impairment [Recovered/Resolved]
  - Depression [Recovered/Resolved]
  - Fear-related avoidance of activities [Unknown]
  - Therapeutic product effect incomplete [Unknown]
  - Overdose [Unknown]
